FAERS Safety Report 22970135 (Version 9)
Quarter: 2024Q4

REPORT INFORMATION
  Report Type: Report from Study
  Country: CA (occurrence: CA)
  Receive Date: 20230922
  Receipt Date: 20241224
  Transmission Date: 20250114
  Serious: Yes (Other)
  Sender: TAKEDA
  Company Number: CA-TAKEDA-2023TUS048424

PATIENT
  Age: 54 Year
  Sex: Female

DRUGS (26)
  1. VEDOLIZUMAB [Suspect]
     Active Substance: VEDOLIZUMAB
     Indication: Crohn^s disease
     Dosage: 300 MILLIGRAM
  2. VEDOLIZUMAB [Suspect]
     Active Substance: VEDOLIZUMAB
     Dosage: 300 MILLIGRAM
  3. VEDOLIZUMAB [Suspect]
     Active Substance: VEDOLIZUMAB
     Dosage: 300 MILLIGRAM
  4. VEDOLIZUMAB [Suspect]
     Active Substance: VEDOLIZUMAB
     Dosage: 300 MILLIGRAM
  5. VEDOLIZUMAB [Suspect]
     Active Substance: VEDOLIZUMAB
     Dosage: 300 MILLIGRAM
  6. VEDOLIZUMAB [Suspect]
     Active Substance: VEDOLIZUMAB
     Dosage: 300 MILLIGRAM, Q4WEEKS
     Dates: start: 20240527
  7. VEDOLIZUMAB [Suspect]
     Active Substance: VEDOLIZUMAB
     Dosage: 300 MILLIGRAM, Q4WEEKS
  8. VEDOLIZUMAB [Suspect]
     Active Substance: VEDOLIZUMAB
     Dosage: 300 MILLIGRAM
  9. VEDOLIZUMAB [Suspect]
     Active Substance: VEDOLIZUMAB
     Dosage: 300 MILLIGRAM
  10. POLYETHYLENE GLYCOL 3350 [Suspect]
     Active Substance: POLYETHYLENE GLYCOL 3350
     Indication: Product used for unknown indication
     Dosage: UNK
  11. IMURAN [Concomitant]
     Active Substance: AZATHIOPRINE
     Dosage: UNK
  12. RAMIPRIL [Concomitant]
     Active Substance: RAMIPRIL
     Dosage: UNK
  13. PAROXETINE [Concomitant]
     Active Substance: PAROXETINE
     Dosage: UNK
  14. LORAZEPAM [Concomitant]
     Active Substance: LORAZEPAM
     Dosage: UNK
  15. CALCIUM [Concomitant]
     Active Substance: CALCIUM
     Dosage: UNK
  16. QUETIAPINE [Concomitant]
     Active Substance: QUETIAPINE
     Dosage: UNK
  17. SODIUM [Concomitant]
     Active Substance: SODIUM
     Dosage: UNK
  18. VITAMIN B12 [Concomitant]
     Active Substance: CYANOCOBALAMIN
     Dosage: UNK
  19. VITAMIN D NOS [Concomitant]
     Active Substance: CHOLECALCIFEROL\ERGOCALCIFEROL
     Dosage: UNK
  20. AZATHIOPRINE [Concomitant]
     Active Substance: AZATHIOPRINE
     Dosage: UNK
  21. SYNTHROID [Concomitant]
     Active Substance: LEVOTHYROXINE SODIUM
     Dosage: UNK
  22. ALENDRONATE [Concomitant]
     Active Substance: ALENDRONATE SODIUM
     Dosage: UNK
  23. PREGABALIN [Concomitant]
     Active Substance: PREGABALIN
     Dosage: UNK
  24. SINEQUAN [Concomitant]
     Active Substance: DOXEPIN HYDROCHLORIDE
     Dosage: UNK
  25. METFORMIN [Concomitant]
     Active Substance: METFORMIN HYDROCHLORIDE
     Dosage: UNK
  26. ROSUVASTATIN [Concomitant]
     Active Substance: ROSUVASTATIN
     Dosage: UNK

REACTIONS (26)
  - Anal ulcer [Not Recovered/Not Resolved]
  - Haematochezia [Unknown]
  - Pneumonia [Recovered/Resolved]
  - Frequent bowel movements [Not Recovered/Not Resolved]
  - Abdominal pain [Not Recovered/Not Resolved]
  - Abdominal distension [Not Recovered/Not Resolved]
  - Constipation [Recovering/Resolving]
  - Therapy non-responder [Unknown]
  - Abdominal discomfort [Unknown]
  - Sedation [Unknown]
  - Arthritis [Not Recovered/Not Resolved]
  - Amnesia [Unknown]
  - Limb discomfort [Unknown]
  - Discouragement [Unknown]
  - Off label use [Unknown]
  - Mouth ulceration [Not Recovered/Not Resolved]
  - Osteoarthritis [Unknown]
  - Faeces soft [Unknown]
  - Abdominal pain upper [Unknown]
  - Diarrhoea [Unknown]
  - Discomfort [Unknown]
  - Dizziness [Not Recovered/Not Resolved]
  - Decreased appetite [Unknown]
  - Anal fissure [Not Recovered/Not Resolved]
  - Back pain [Unknown]
  - Fatigue [Unknown]

NARRATIVE: CASE EVENT DATE: 20230515
